FAERS Safety Report 5211593-9 (Version None)
Quarter: 2007Q1

REPORT INFORMATION
  Report Type: 
  Country: None (occurrence: None)
  Receive Date: 20070118
  Receipt Date: 20070110
  Transmission Date: 20070707
  Serious: Yes (Death)
  Sender: FDA-Public Use
  Company Number: US-JNJFOC-20061202055

PATIENT
  Sex: Male

DRUGS (2)
  1. DURAGESIC-100 [Suspect]
     Indication: CANCER PAIN
     Route: 062
  2. DURAGESIC-100 [Suspect]
     Indication: CARDIAC NEOPLASM MALIGNANT
     Route: 062

REACTIONS (2)
  - CARDIAC NEOPLASM MALIGNANT [None]
  - HYPERHIDROSIS [None]
